FAERS Safety Report 6970508-3 (Version None)
Quarter: 2010Q3

REPORT INFORMATION
  Report Type: 
  Country: None (occurrence: None)
  Receive Date: 20100908
  Receipt Date: 20100831
  Transmission Date: 20110219
  Serious: Yes (Life-Threatening)
  Sender: FDA-Public Use
  Company Number: JP-ROCHE-712564

PATIENT
  Sex: Female
  Weight: 34 kg

DRUGS (5)
  1. AVASTIN [Suspect]
     Indication: RECTAL CANCER RECURRENT
     Dosage: NOTE: DOSAGE IS UNCERTAIN.
     Route: 041
     Dates: start: 20100222, end: 20100318
  2. XELODA [Suspect]
     Indication: RECTAL CANCER RECURRENT
     Route: 048
     Dates: start: 20100222, end: 20100401
  3. ELPLAT [Concomitant]
     Route: 041
     Dates: start: 20100222, end: 20100318
  4. LOXONIN [Concomitant]
     Route: 048
     Dates: start: 20100301, end: 20100506
  5. MUCOSTA [Concomitant]
     Route: 048
     Dates: start: 20100301, end: 20100506

REACTIONS (3)
  - ANAL FISTULA [None]
  - NECROTISING FASCIITIS [None]
  - SEPTIC SHOCK [None]
